FAERS Safety Report 16318380 (Version 4)
Quarter: 2019Q4

REPORT INFORMATION
  Report Type: Report from Study
  Country: JP (occurrence: JP)
  Receive Date: 20190516
  Receipt Date: 20191101
  Transmission Date: 20200122
  Serious: Yes (Other)
  Sender: FDA-Public Use
  Company Number: JP-BRISTOL-MYERS SQUIBB COMPANY-BMS-2019-030992

PATIENT
  Age: 46 Year
  Sex: Male
  Weight: 54 kg

DRUGS (6)
  1. MEKINIST [Suspect]
     Active Substance: TRAMETINIB DIMETHYL SULFOXIDE
     Indication: MALIGNANT MELANOMA
     Dosage: UNK
     Route: 048
     Dates: start: 201904
  2. BRAFTOVI [Suspect]
     Active Substance: ENCORAFENIB
     Indication: MALIGNANT MELANOMA
     Dosage: 450 MILLIGRAM
     Route: 048
     Dates: start: 20190717
  3. NIVOLUMAB [Suspect]
     Active Substance: NIVOLUMAB
     Indication: MALIGNANT MELANOMA
     Dosage: 80 MILLIGRAM/BODY
     Route: 041
     Dates: start: 20190304, end: 20190417
  4. IPILIMUMAB [Suspect]
     Active Substance: IPILIMUMAB
     Indication: MALIGNANT MELANOMA
     Dosage: 3 MILLIGRAM/KILOGRAM
     Route: 041
     Dates: start: 20190304, end: 20190417
  5. TAFINLAR [Suspect]
     Active Substance: DABRAFENIB MESYLATE
     Indication: MALIGNANT MELANOMA
     Dosage: UNK
     Route: 048
     Dates: start: 201904
  6. MEKTOVI [Suspect]
     Active Substance: BINIMETINIB
     Indication: MALIGNANT MELANOMA
     Dosage: 45 MILLIGRAM
     Route: 048
     Dates: start: 20190717

REACTIONS (5)
  - Nausea [Unknown]
  - Diarrhoea [Recovered/Resolved]
  - Malignant neoplasm progression [Recovering/Resolving]
  - Hepatic function abnormal [Recovered/Resolved]
  - Brain oedema [Recovered/Resolved]

NARRATIVE: CASE EVENT DATE: 201903
